FAERS Safety Report 20311067 (Version 1)
Quarter: 2022Q1

REPORT INFORMATION
  Report Type: Spontaneous
  Country: GB (occurrence: GB)
  Receive Date: 20220107
  Receipt Date: 20220107
  Transmission Date: 20220423
  Serious: Yes (Life-Threatening, Hospitalization, Other)
  Sender: FDA-Public Use
  Company Number: None

PATIENT
  Age: 83 Year
  Sex: Male

DRUGS (7)
  1. SPIRONOLACTONE [Suspect]
     Active Substance: SPIRONOLACTONE
     Dosage: UNK UNK, 1X/DAY
     Route: 048
  2. FUROSEMIDE [Suspect]
     Active Substance: FUROSEMIDE
     Dosage: 40 MG, 1X/DAY, IN THE MORNING
     Route: 048
  3. RAMIPRIL [Suspect]
     Active Substance: RAMIPRIL
     Dosage: UNK UNK, 1X/DAY
     Route: 048
  4. TRIMETHOPRIM [Suspect]
     Active Substance: TRIMETHOPRIM
     Indication: Urinary tract infection
     Dosage: 200 MG, 2X/DAY
     Dates: start: 20210711, end: 20210718
  5. METHYLDOPA [Concomitant]
     Active Substance: METHYLDOPA
     Dosage: 250 MG, 2X/DAY
  6. CALCIUM CARBONATE [Concomitant]
     Active Substance: CALCIUM CARBONATE
  7. METFORMIN [Concomitant]
     Active Substance: METFORMIN HYDROCHLORIDE

REACTIONS (8)
  - Acute kidney injury [Recovered/Resolved]
  - Blood creatinine increased [Unknown]
  - Glomerular filtration rate decreased [Unknown]
  - C-reactive protein increased [Unknown]
  - White blood cell count increased [Unknown]
  - Blood urea increased [Unknown]
  - Dehydration [Unknown]
  - Medication error [Unknown]

NARRATIVE: CASE EVENT DATE: 20210722
